FAERS Safety Report 5976068-8 (Version None)
Quarter: 2008Q4

REPORT INFORMATION
  Report Type: 
  Country: None (occurrence: None)
  Receive Date: 20081202
  Receipt Date: 20081121
  Transmission Date: 20090506
  Serious: Yes (Hospitalization, Other)
  Sender: FDA-Public Use
  Company Number: US-ROCHE-598858

PATIENT
  Age: 71 Year
  Sex: Female

DRUGS (2)
  1. LARIAM [Suspect]
     Indication: PROPHYLAXIS
     Route: 065
     Dates: start: 19980101
  2. FOSAMAX [Concomitant]
     Dates: start: 19980101

REACTIONS (8)
  - CHOKING SENSATION [None]
  - DEHYDRATION [None]
  - DEPRESSION [None]
  - FALL [None]
  - PANIC ATTACK [None]
  - PARANOIA [None]
  - PSYCHOTIC DISORDER [None]
  - SWOLLEN TONGUE [None]
